FAERS Safety Report 4650444-8 (Version None)
Quarter: 2005Q2

REPORT INFORMATION
  Report Type: 
  Country: None (occurrence: None)
  Receive Date: 20050428
  Receipt Date: 20050421
  Transmission Date: 20051028
  Serious: No
  Sender: FDA-Public Use
  Company Number: 2005UW06223

PATIENT
  Age: 43 Year
  Sex: Male
  Weight: 104.32 kg

DRUGS (2)
  1. NEXIUM [Suspect]
     Indication: GASTROOESOPHAGEAL REFLUX DISEASE
     Dosage: 40 MG QD PO
     Route: 048
     Dates: start: 20040101
  2. COLBENEMID [Concomitant]

REACTIONS (4)
  - ABDOMINAL PAIN [None]
  - CARCINOID SYNDROME [None]
  - FLUSHING [None]
  - HYPERTENSION [None]
